FAERS Safety Report 10487292 (Version 6)
Quarter: 2014Q4

REPORT INFORMATION
  Report Type: Spontaneous
  Country: US (occurrence: US)
  Receive Date: 20141001
  Receipt Date: 20141212
  Transmission Date: 20150528
  Serious: Yes (Hospitalization)
  Sender: FDA-Public Use
  Company Number: US-ACTELION-A-NJ2014-105686

PATIENT
  Age: 68 Year
  Sex: Male

DRUGS (4)
  1. OPSUMIT [Suspect]
     Active Substance: MACITENTAN
     Indication: PULMONARY ARTERIAL HYPERTENSION
     Dosage: 10 MG, UNK
     Route: 048
     Dates: start: 20140812
  2. REMODULIN [Concomitant]
     Active Substance: TREPROSTINIL
     Dosage: UNK
  3. WARFARIN [Concomitant]
     Active Substance: WARFARIN
  4. ADCIRCA [Concomitant]
     Active Substance: TADALAFIL

REACTIONS (10)
  - Rib fracture [Recovering/Resolving]
  - Splenic rupture [Recovered/Resolved]
  - Fall [Recovered/Resolved]
  - Device damage [Recovered/Resolved]
  - Renal disorder [Unknown]
  - Device malfunction [Recovered/Resolved]
  - Drug dose omission [Recovered/Resolved]
  - Cardiac arrest [Recovered/Resolved]
  - Concussion [Unknown]
  - Dialysis [Unknown]

NARRATIVE: CASE EVENT DATE: 20140910
